FAERS Safety Report 9462454 (Version 3)
Quarter: 2013Q4

REPORT INFORMATION
  Report Type: Spontaneous
  Country: PL (occurrence: PL)
  Receive Date: 20130816
  Receipt Date: 20131021
  Transmission Date: 20140711
  Serious: Yes (Life-Threatening, Other)
  Sender: FDA-Public Use
  Company Number: PL-AMGEN-POLSP2013051884

PATIENT
  Age: 61 Year
  Sex: Female
  Weight: 53 kg

DRUGS (6)
  1. ENBREL [Suspect]
     Indication: RHEUMATOID ARTHRITIS
     Dosage: 1X50 MG/WEEK
     Route: 058
     Dates: start: 20130426, end: 20130521
  2. METEX                              /00113802/ [Concomitant]
     Indication: RHEUMATOID ARTHRITIS
     Dosage: 25 MG, QWK
     Route: 058
     Dates: start: 2004
  3. HELICID                            /00661201/ [Concomitant]
     Indication: PROPHYLAXIS
     Dosage: UNK
     Dates: start: 2006
  4. BISOCARD [Concomitant]
     Indication: HYPERTENSION
     Dosage: UNK
     Dates: start: 2010
  5. ASPARGIN                           /00466901/ [Concomitant]
     Indication: SUPPLEMENTATION THERAPY
     Dosage: UNK
     Dates: start: 2006
  6. ACIDUM FOLICUM [Concomitant]
     Indication: RHEUMATOID ARTHRITIS
     Dosage: 15 MG/WEEK
     Dates: start: 2004

REACTIONS (4)
  - Rash erythematous [Unknown]
  - Necrolytic migratory erythema [Recovered/Resolved]
  - Rash pruritic [Recovered/Resolved]
  - Erythema [Recovered/Resolved]
